FAERS Safety Report 5430656-6 (Version None)
Quarter: 2007Q3

REPORT INFORMATION
  Report Type: 
  Country: None (occurrence: None)
  Receive Date: 20070830
  Receipt Date: 20070816
  Transmission Date: 20080115
  Serious: Yes (Hospitalization)
  Sender: FDA-Public Use
  Company Number: JP-ABBOTT-97P-087-0062657-00

PATIENT
  Age: 10 Year
  Sex: Female

DRUGS (5)
  1. VALPROIC ACID [Suspect]
     Indication: EPILEPSY
     Route: 042
  2. VALPROIC ACID [Suspect]
  3. PANIPENEM/BETAMIPRON [Suspect]
     Indication: EMPYEMA
     Route: 042
  4. CARBAMAZEPINE [Concomitant]
     Indication: EPILEPSY
     Dosage: NOT REPORTED
  5. PHENOBARBITAL TAB [Concomitant]
     Indication: EPILEPSY
     Dosage: NOT REPORTED

REACTIONS (6)
  - CONDITION AGGRAVATED [None]
  - CONVULSION [None]
  - DRUG INTERACTION [None]
  - DRUG LEVEL DECREASED [None]
  - LUNG DISORDER [None]
  - PYOTHORAX [None]
